FAERS Safety Report 4554289-9 (Version None)
Quarter: 2005Q1

REPORT INFORMATION
  Report Type: 
  Country: None (occurrence: None)
  Receive Date: 20050118
  Receipt Date: 20041214
  Transmission Date: 20050727
  Serious: Yes (Other)
  Sender: FDA-Public Use
  Company Number: US-GLAXOSMITHKLINE-A0537260A

PATIENT
  Age: 41 Year

DRUGS (5)
  1. PAXIL [Suspect]
     Indication: DEPRESSION
     Dosage: 20MG PER DAY
     Route: 048
  2. VICODIN [Concomitant]
  3. QUELICIN [Concomitant]
  4. PAMELOR [Concomitant]
  5. LIPITOR [Concomitant]
     Indication: BLOOD CHOLESTEROL INCREASED

REACTIONS (22)
  - ANGER [None]
  - ANXIETY [None]
  - BREAST DISCHARGE [None]
  - ECZEMA [None]
  - FEELING ABNORMAL [None]
  - FUNGAL INFECTION [None]
  - GYNAECOMASTIA [None]
  - HAEMORRHOIDS [None]
  - HEART RATE IRREGULAR [None]
  - HOMICIDAL IDEATION [None]
  - HYPERSOMNIA [None]
  - MICTURITION DISORDER [None]
  - MOVEMENT DISORDER [None]
  - MUSCULAR DYSTROPHY [None]
  - PARAESTHESIA [None]
  - PARANOIA [None]
  - RASH [None]
  - RETCHING [None]
  - SUICIDAL IDEATION [None]
  - TINNITUS [None]
  - VENTRICULAR EXTRASYSTOLES [None]
  - WEIGHT DECREASED [None]
